FAERS Safety Report 4651579-6 (Version None)
Quarter: 2005Q2

REPORT INFORMATION
  Report Type: 
  Country: None (occurrence: None)
  Receive Date: 20050502
  Receipt Date: 20050419
  Transmission Date: 20051028
  Serious: Yes (Other)
  Sender: FDA-Public Use
  Company Number: 2005062827

PATIENT

DRUGS (1)
  1. CLEOCIN PHOSPHATE [Suspect]
     Indication: ILL-DEFINED DISORDER
     Dosage: 900 MG (1 IN 1 D), INTRAVENOUS
     Route: 042

REACTIONS (1)
  - UNEVALUABLE EVENT [None]
